FAERS Safety Report 5894672-2 (Version None)
Quarter: 2008Q3

REPORT INFORMATION
  Report Type: 
  Country: None (occurrence: None)
  Receive Date: 20080922
  Receipt Date: 20080910
  Transmission Date: 20090109
  Serious: Yes (Other)
  Sender: FDA-Public Use
  Company Number: POMP-1000308

PATIENT
  Age: 4 Month
  Sex: Female

DRUGS (3)
  1. MYOZYME [Suspect]
     Indication: GLYCOGEN STORAGE DISEASE TYPE II
     Dosage: 40 MG/KG, Q2W, INTRAVENOUS
     Route: 042
     Dates: start: 20060308
  2. CARVEDILOL [Concomitant]
  3. LASIX [Concomitant]

REACTIONS (12)
  - ASPIRATION [None]
  - BLOOD CREATINE PHOSPHOKINASE INCREASED [None]
  - BRADYCARDIA [None]
  - COLLAPSE OF LUNG [None]
  - DYSPHAGIA [None]
  - DYSPNOEA [None]
  - HEPATOMEGALY [None]
  - HYPERTROPHIC CARDIOMYOPATHY [None]
  - HYPOTONIA [None]
  - LIVER FUNCTION TEST ABNORMAL [None]
  - PNEUMONIA STREPTOCOCCAL [None]
  - TACHYPNOEA [None]
